FAERS Safety Report 18689794 (Version 1)
Quarter: 2020Q4

REPORT INFORMATION
  Report Type: Spontaneous
  Country: SY (occurrence: SY)
  Receive Date: 20201231
  Receipt Date: 20201231
  Transmission Date: 20210114
  Serious: Yes (Other)
  Sender: FDA-Public Use
  Company Number: SY-009507513-2012SYR010506

PATIENT
  Age: 52 Year
  Sex: Male

DRUGS (3)
  1. MEGLUMINE ANTIMONITE [Suspect]
     Active Substance: MEGLUMINE ANTIMONIATE
     Indication: CUTANEOUS LEISHMANIASIS
     Dosage: 60 MG/KG/DAY (DIVIDED INTO TWO DOSES)
  2. CEFTRIAXONE. [Suspect]
     Active Substance: CEFTRIAXONE
     Indication: CUTANEOUS LEISHMANIASIS
     Dosage: UNK
  3. BETAMETHASONE DIPROPIONATE (+) GENTAMICIN SULFATE [Suspect]
     Active Substance: BETAMETHASONE DIPROPIONATE\GENTAMICIN SULFATE
     Indication: CUTANEOUS LEISHMANIASIS
     Dosage: UNK

REACTIONS (1)
  - Electrocardiogram QT prolonged [Recovering/Resolving]
